FAERS Safety Report 8261675-2 (Version None)
Quarter: 2012Q2

REPORT INFORMATION
  Report Type: 
  Country: None (occurrence: None)
  Receive Date: 20120405
  Receipt Date: 20120405
  Transmission Date: 20120825
  Serious: Yes (Other)
  Sender: FDA-Public Use
  Company Number: None

PATIENT
  Age: 62 Year
  Sex: Female
  Weight: 87.543 kg

DRUGS (1)
  1. BISMUTH SUBSALICYLATE [Suspect]
     Indication: DIARRHOEA
     Dosage: 2 TABLESPOONS
     Route: 048
     Dates: start: 20120327, end: 20120331

REACTIONS (4)
  - DISINHIBITION [None]
  - TEARFULNESS [None]
  - AFFECT LABILITY [None]
  - AGGRESSION [None]
